FAERS Safety Report 9202220 (Version 1)
Quarter: 2013Q2

REPORT INFORMATION
  Report Type: Spontaneous
  Country: US (occurrence: US)
  Receive Date: 20130401
  Receipt Date: 20130401
  Transmission Date: 20140414
  Serious: Yes (Death)
  Sender: FDA-Public Use
  Company Number: US-INCYTE CORPORATION-2012IN002715

PATIENT
  Age: 68 Year
  Sex: Male
  Weight: 77.1 kg

DRUGS (7)
  1. JAKAFI [Suspect]
     Indication: MYELOFIBROSIS
     Dosage: 10 MG, BID
     Route: 048
     Dates: start: 20121112
  2. MYFORTIC [Concomitant]
  3. PROGRAF [Concomitant]
  4. MAGNESIUM [Concomitant]
  5. VITAMIN D [Concomitant]
  6. COREG [Concomitant]
  7. ASPIRIN [Concomitant]
     Dosage: 81 MG

REACTIONS (2)
  - Death [Fatal]
  - Anaemia [Unknown]
